FAERS Safety Report 23772601 (Version 1)
Quarter: 2024Q2

REPORT INFORMATION
  Report Type: Spontaneous
  Country: GB (occurrence: None)
  Receive Date: 20240422
  Receipt Date: 20240422
  Transmission Date: 20240716
  Serious: Yes (Disabling)
  Sender: FDA-Public Use
  Company Number: None

PATIENT
  Age: 26 Year
  Sex: Female
  Weight: 90 kg

DRUGS (4)
  1. LISDEXAMFETAMINE [Suspect]
     Active Substance: LISDEXAMFETAMINE
     Indication: Attention deficit hyperactivity disorder
     Dates: start: 20220901, end: 20230116
  2. MIRTAZAPINE [Concomitant]
  3. venlaxafine [Concomitant]
  4. ARIPIPRAZOLE [Concomitant]

REACTIONS (4)
  - Insomnia [None]
  - Psychotic disorder [None]
  - Hallucination, auditory [None]
  - Abnormal behaviour [None]

NARRATIVE: CASE EVENT DATE: 20230117
